FAERS Safety Report 7234268-3 (Version None)
Quarter: 2011Q1

REPORT INFORMATION
  Report Type: 
  Country: None (occurrence: None)
  Receive Date: 20110119
  Receipt Date: 20110110
  Transmission Date: 20110831
  Serious: Yes (Death, Other)
  Sender: FDA-Public Use
  Company Number: IE-MEDIMMUNE-MEDI-0012174

PATIENT
  Sex: Female
  Weight: 8.16 kg

DRUGS (6)
  1. LACTULOSE [Concomitant]
  2. SYNAGIS [Suspect]
     Indication: SPINAL MUSCULAR ATROPHY
  3. SYNAGIS [Suspect]
     Route: 030
     Dates: start: 20101115, end: 20101214
  4. AUGMENTIN '125' [Concomitant]
  5. DUPHALAX [Concomitant]
  6. RANITIDINE HYDROCHLORIDE [Concomitant]

REACTIONS (1)
  - TERMINAL STATE [None]
